FAERS Safety Report 9184898 (Version 4)
Quarter: 2013Q3

REPORT INFORMATION
  Report Type: Report from Study
  Country: CA (occurrence: CA)
  Receive Date: 20130325
  Receipt Date: 20130808
  Transmission Date: 20140515
  Serious: Yes (Death, Hospitalization, Other)
  Sender: FDA-Public Use
  Company Number: CA-ALEXION PHARMACEUTICALS INC.-A201300489

PATIENT
  Age: 55 Year
  Sex: Male
  Weight: 84 kg

DRUGS (23)
  1. SOLIRIS [Suspect]
     Indication: PAROXYSMAL NOCTURNAL HAEMOGLOBINURIA
     Dosage: 600 MG, QW
     Route: 042
     Dates: start: 20110228, end: 20110322
  2. SOLIRIS [Suspect]
     Dosage: 900 MG, Q2W
     Route: 042
     Dates: start: 20110328, end: 20120227
  3. SOLIRIS [Suspect]
     Dosage: 1200 MG, Q2W
     Route: 042
     Dates: end: 20120730
  4. SOLIRIS [Suspect]
     Dosage: 600 MG, QW
     Route: 042
     Dates: start: 20121022, end: 20121112
  5. SOLIRIS [Suspect]
     Dosage: 900 MG, Q2W
     Route: 042
     Dates: start: 20121119
  6. SOLIRIS [Suspect]
     Dosage: 1200 MG, Q2W
     Route: 042
     Dates: start: 20130225, end: 20130225
  7. PREDNISONE [Concomitant]
     Indication: PAROXYSMAL NOCTURNAL HAEMOGLOBINURIA
     Dosage: 40 MG, QD
  8. FOLIC ACID [Concomitant]
     Indication: PAROXYSMAL NOCTURNAL HAEMOGLOBINURIA
     Dosage: 5 MG, QD
  9. VITAMIN B12 [Concomitant]
     Indication: IRON DEFICIENCY
     Dosage: 1200 MG, QD
  10. FRAGMIN [Concomitant]
     Indication: ANTICOAGULANT THERAPY
     Dosage: 5000 DF, QD
     Route: 058
  11. FOSAMAX [Concomitant]
     Indication: PROPHYLAXIS
     Dosage: 70 MG, QW
  12. HUMALOG INSULIN [Concomitant]
     Dosage: 28U IN AM, 16U IN PM
  13. OMEGA 3 [Concomitant]
     Dosage: 3 DF, QD
     Route: 048
  14. CALCIUM [Concomitant]
     Dosage: UNK, QD
  15. VITAMIN D [Concomitant]
     Dosage: UNK, QD
  16. MULTIVITAMIN [Concomitant]
     Dosage: UNK, QD
  17. COENZYME Q10 [Concomitant]
     Dosage: UNK, QD
  18. GLUTAMINE [Concomitant]
     Dosage: UNK, QD
  19. VITAMIN B1 [Concomitant]
     Dosage: UNK, QD
  20. VITAMIN B6 [Concomitant]
     Dosage: UNK, QD
  21. SPIRONOLACTONE [Concomitant]
     Dosage: 500 MG, BID
  22. FUROSEMIDE [Concomitant]
     Dosage: 20 MG, QD
  23. PANTOPRAZOLE [Concomitant]
     Dosage: 40 MG, QD

REACTIONS (5)
  - Multi-organ failure [Fatal]
  - Graft versus host disease [Fatal]
  - Bone marrow transplant [Recovered/Resolved with Sequelae]
  - Mouth ulceration [Recovered/Resolved]
  - Pharyngitis [Recovered/Resolved]
